FAERS Safety Report 22196539 (Version 1)
Quarter: 2023Q2

REPORT INFORMATION
  Report Type: Spontaneous
  Country: SA (occurrence: SA)
  Receive Date: 20230411
  Receipt Date: 20230411
  Transmission Date: 20230722
  Serious: Yes (Death, Hospitalization)
  Sender: FDA-Public Use
  Company Number: SA-Sudair Pharmaceutical Company-202300003

PATIENT
  Age: 65 Year
  Sex: Female
  Weight: 57 kg

DRUGS (2)
  1. CAPECITABINE [Suspect]
     Active Substance: CAPECITABINE
     Indication: Product used for unknown indication
     Dosage: SHE TAKE 1500 MG BID
     Route: 048
     Dates: start: 20221228, end: 20230107
  2. OXALIPLATIN [Concomitant]
     Active Substance: OXALIPLATIN
     Indication: Product used for unknown indication
     Dosage: OXALIPLATIN 130 MG/M2

REACTIONS (10)
  - Acute kidney injury [Fatal]
  - Diarrhoea [Fatal]
  - Pancytopenia [Fatal]
  - Tachypnoea [Unknown]
  - Lip swelling [Unknown]
  - Stomatitis [Recovering/Resolving]
  - Tachycardia [Unknown]
  - Abdominal pain [Unknown]
  - Nausea [Unknown]
  - Dysphagia [Unknown]

NARRATIVE: CASE EVENT DATE: 20230102
